FAERS Safety Report 6131497-7 (Version None)
Quarter: 2009Q1

REPORT INFORMATION
  Report Type: 
  Country: None (occurrence: None)
  Receive Date: 20090325
  Receipt Date: 20081103
  Transmission Date: 20090719
  Serious: Yes (Hospitalization, Other)
  Sender: FDA-Public Use
  Company Number: US-BRISTOL-MYERS SQUIBB COMPANY-14317036

PATIENT
  Age: 53 Year
  Sex: Male

DRUGS (12)
  1. ERBITUX [Suspect]
     Indication: LUNG NEOPLASM MALIGNANT
     Route: 042
     Dates: start: 20080827, end: 20080827
  2. HYDROCODONE BITARTRATE [Concomitant]
  3. ADVAIR HFA [Concomitant]
  4. ASPIRIN [Concomitant]
  5. MUCINEX [Concomitant]
  6. DEXAMETHASONE TAB [Concomitant]
  7. FOLIC ACID [Concomitant]
  8. SPIRIVA [Concomitant]
  9. AMIODARONE HCL [Concomitant]
  10. LORTAB [Concomitant]
  11. XANAX [Concomitant]
  12. BENADRYL [Concomitant]
     Indication: PREMEDICATION
     Dosage: 50MG IV PIGGYBACK
     Route: 042

REACTIONS (6)
  - DYSPNOEA [None]
  - FEELING COLD [None]
  - OXYGEN SATURATION DECREASED [None]
  - TACHYCARDIA [None]
  - TREMOR [None]
  - WHEEZING [None]
